FAERS Safety Report 8909858 (Version 2)
Quarter: 2012Q4

REPORT INFORMATION
  Report Type: 
  Country: PL (occurrence: PL)
  Receive Date: 20121115
  Receipt Date: 20121128
  Transmission Date: 20130627
  Serious: Yes (Hospitalization)
  Sender: FDA-Public Use
  Company Number: PL-UCBSA-070773

PATIENT
  Age: 71 Year
  Sex: Female

DRUGS (7)
  1. KEPPRA [Suspect]
     Indication: CONVULSION
     Dosage: DAILY DOSE :1500 MG
  2. SUNITINIB [Concomitant]
     Indication: RENAL CELL CARCINOMA
     Dosage: DAILY DOSE  : 50 MG
  3. SUNITINIB [Concomitant]
     Indication: RENAL CELL CARCINOMA
     Dosage: DAILY DOSE  : 37.5 MG
  4. BISOPROLOL FUMARATE [Concomitant]
     Indication: HYPERTENSION
     Dosage: DAILY DOSE : 2.5 MG
  5. AMLODIPINE BESYLATE [Concomitant]
     Indication: HYPERTENSION
  6. DEPAKINE CHROMOSPHERE [Concomitant]
     Indication: CONVULSION
     Dosage: DAILY DOSE : 800 MG
  7. DEPAKINE CHROMOSPHERE [Concomitant]
     Indication: CONVULSION
     Dosage: DAILY DOSE : 2000 MG

REACTIONS (1)
  - Hyponatraemia [Recovered/Resolved]
